FAERS Safety Report 9019414 (Version 2)
Quarter: 2013Q2

REPORT INFORMATION
  Report Type: Spontaneous
  Country: US (occurrence: US)
  Receive Date: 20130119
  Receipt Date: 20130607
  Transmission Date: 20140414
  Serious: No
  Sender: FDA-Public Use
  Company Number: US-009507513-1301USA006212

PATIENT
  Age: 58 Year
  Sex: Female
  Weight: 98.41 kg

DRUGS (7)
  1. DULERA [Suspect]
     Indication: ASTHMA
     Dosage: ONE PUFF, BID
     Route: 055
     Dates: start: 20120823, end: 20121101
  2. DULERA [Suspect]
     Dosage: ONE PUFF, QD
     Route: 055
     Dates: start: 20121101
  3. SINGULAIR [Concomitant]
     Indication: ASTHMA
     Dosage: 10 MG, TID
     Route: 048
     Dates: start: 201103
  4. HYDROCHLOROTHIAZIDE [Concomitant]
     Indication: HYPERTENSION
     Dosage: 50 MG, TID
     Route: 048
     Dates: start: 201103
  5. SYNTHROID [Concomitant]
     Dosage: UNK
  6. VERAPAMIL [Concomitant]
     Indication: HYPERTENSION
     Dosage: 20 MG, TID
     Route: 048
     Dates: start: 201105
  7. MOSYL [Concomitant]
     Dosage: 15 MG, TID
     Route: 048
     Dates: start: 201103

REACTIONS (1)
  - Dysphonia [Recovering/Resolving]
